FAERS Safety Report 5549513-X (Version None)
Quarter: 2007Q4

REPORT INFORMATION
  Report Type: 
  Country: None (occurrence: None)
  Receive Date: 20071212
  Receipt Date: 20071206
  Transmission Date: 20080405
  Serious: Yes (Life-Threatening, Hospitalization)
  Sender: FDA-Public Use
  Company Number: PHEH2007US15504

PATIENT
  Age: 54 Year
  Sex: Female

DRUGS (4)
  1. TRILEPTAL [Suspect]
     Indication: CONVULSION
     Dosage: 900 MG, BID
     Dates: start: 20060101, end: 20071114
  2. TRILEPTAL [Suspect]
     Dosage: 1800 MG, BID
     Dates: start: 20071114, end: 20071204
  3. LAMICTAL [Concomitant]
     Dosage: 250 MG, BID
  4. ZONEGRAN [Concomitant]
     Dosage: 200 MG IN AM, 300 MG IN PM

REACTIONS (13)
  - ACCIDENTAL OVERDOSE [None]
  - ALANINE AMINOTRANSFERASE INCREASED [None]
  - ASPARTATE AMINOTRANSFERASE INCREASED [None]
  - BLOOD CREATINE PHOSPHOKINASE INCREASED [None]
  - BLOOD SODIUM INCREASED [None]
  - COMA [None]
  - CONVULSION [None]
  - FULL BLOOD COUNT ABNORMAL [None]
  - HYPERCHLORAEMIA [None]
  - HYPOKALAEMIA [None]
  - HYPOTENSION [None]
  - MECHANICAL VENTILATION [None]
  - UNRESPONSIVE TO STIMULI [None]
